FAERS Safety Report 10445876 (Version 3)
Quarter: 2015Q3

REPORT INFORMATION
  Report Type: Spontaneous
  Country: US (occurrence: US)
  Receive Date: 20140910
  Receipt Date: 20150818
  Transmission Date: 20151125
  Serious: No
  Sender: FDA-Public Use
  Company Number: US-GILEAD-2014-0114760

PATIENT
  Age: 50 Year
  Sex: Female

DRUGS (12)
  1. KALETRA [Concomitant]
     Active Substance: LOPINAVIR\RITONAVIR
  2. LETAIRIS [Suspect]
     Active Substance: AMBRISENTAN
     Indication: PULMONARY HYPERTENSION
     Dosage: 10 MG, QD
     Route: 065
     Dates: start: 20140609, end: 20140809
  3. LETAIRIS [Suspect]
     Active Substance: AMBRISENTAN
     Dosage: 10 MG, QD
     Route: 065
     Dates: start: 20140805
  4. LIDOCAINE. [Concomitant]
     Active Substance: LIDOCAINE
  5. REMODULIN [Concomitant]
     Active Substance: TREPROSTINIL
  6. LYRICA [Concomitant]
     Active Substance: PREGABALIN
  7. VALIUM [Concomitant]
     Active Substance: DIAZEPAM
  8. OXYCODONE [Concomitant]
     Active Substance: OXYCODONE
  9. TRUVADA [Suspect]
     Active Substance: EMTRICITABINE\TENOFOVIR DISOPROXIL FUMARATE
     Indication: PRODUCT USED FOR UNKNOWN INDICATION
     Route: 065
  10. ADEMPAS [Concomitant]
     Active Substance: RIOCIGUAT
  11. LETAIRIS [Suspect]
     Active Substance: AMBRISENTAN
     Indication: COR PULMONALE CHRONIC
     Dosage: 5 UNK, UNK
     Route: 065
  12. DETROL [Concomitant]
     Active Substance: TOLTERODINE TARTRATE

REACTIONS (3)
  - Malaise [Recovered/Resolved]
  - Nasal congestion [Recovered/Resolved]
  - Headache [Not Recovered/Not Resolved]

NARRATIVE: CASE EVENT DATE: 20140809
